FAERS Safety Report 10449648 (Version 1)
Quarter: 2014Q3

REPORT INFORMATION
  Report Type: Spontaneous
  Country: US (occurrence: US)
  Receive Date: 20140912
  Receipt Date: 20140912
  Transmission Date: 20150326
  Serious: Yes (Hospitalization)
  Sender: FDA-Public Use
  Company Number: US-INCYTE CORPORATION-2014IN001569

PATIENT
  Age: 73 Year
  Sex: Female

DRUGS (13)
  1. SYNTHROID [Concomitant]
     Active Substance: LEVOTHYROXINE SODIUM
  2. ACTOS [Concomitant]
     Active Substance: PIOGLITAZONE HYDROCHLORIDE
  3. PLAVIX [Concomitant]
     Active Substance: CLOPIDOGREL BISULFATE
  4. ZOLOFT [Concomitant]
     Active Substance: SERTRALINE HYDROCHLORIDE
  5. JAKAFI [Suspect]
     Active Substance: RUXOLITINIB
     Indication: MYELOFIBROSIS
     Dosage: 20 MG, BID
     Route: 048
  6. CRESTOR [Concomitant]
     Active Substance: ROSUVASTATIN CALCIUM
  7. MULTIVITAMINS [Concomitant]
     Active Substance: VITAMINS
  8. METOPROLOL [Concomitant]
     Active Substance: METOPROLOL
  9. ASPIRIN. [Concomitant]
     Active Substance: ASPIRIN
  10. FOSAMAX [Concomitant]
     Active Substance: ALENDRONATE SODIUM
  11. ALPHAGAN P [Concomitant]
     Active Substance: BRIMONIDINE TARTRATE
  12. OSTEO BI-FLEX                      /01431201/ [Concomitant]
  13. METFORMIN [Concomitant]
     Active Substance: METFORMIN HYDROCHLORIDE

REACTIONS (1)
  - Anaemia [Unknown]

NARRATIVE: CASE EVENT DATE: 201405
